FAERS Safety Report 4327159-9 (Version None)
Quarter: 2004Q1

REPORT INFORMATION
  Report Type: 
  Country: None (occurrence: None)
  Receive Date: 20040330
  Receipt Date: 20040317
  Transmission Date: 20041129
  Serious: Yes (Disabling)
  Sender: FDA-Public Use
  Company Number: FI-GLAXOSMITHKLINE-B0327209A

PATIENT
  Age: 58 Year
  Sex: Male

DRUGS (4)
  1. ZYBAN [Suspect]
     Dosage: 150MG SEE DOSAGE TEXT
     Route: 048
     Dates: start: 20030915
  2. FORMOTEROL [Concomitant]
     Dosage: 6MCG PER DAY
  3. BUDESONIDE [Concomitant]
     Dosage: 400MCG TWICE PER DAY
  4. IPRATROPIUM SALBUTAMOL [Concomitant]

REACTIONS (7)
  - FEELING ABNORMAL [None]
  - HYPOAESTHESIA [None]
  - INSOMNIA [None]
  - IRRITABILITY [None]
  - MUSCULAR WEAKNESS [None]
  - PARAESTHESIA [None]
  - PERONEAL NERVE PALSY [None]
